FAERS Safety Report 21894952 (Version 4)
Quarter: 2024Q3

REPORT INFORMATION
  Report Type: Spontaneous
  Country: JP (occurrence: JP)
  Receive Date: 20230122
  Receipt Date: 20240722
  Transmission Date: 20241016
  Serious: Yes (Hospitalization, Other)
  Sender: BRISTOL MYERS SQUIBB
  Company Number: JP-BRISTOL-MYERS SQUIBB COMPANY-2022-051453

PATIENT
  Age: 72 Year
  Sex: Male

DRUGS (4)
  1. YERVOY [Suspect]
     Active Substance: IPILIMUMAB
     Indication: Non-small cell lung cancer
     Route: 041
     Dates: start: 20211112, end: 20220114
  2. OPDIVO [Suspect]
     Active Substance: NIVOLUMAB
     Indication: Non-small cell lung cancer
     Route: 041
     Dates: start: 20211112, end: 20220114
  3. CARBOPLATIN [Suspect]
     Active Substance: CARBOPLATIN
     Indication: Non-small cell lung cancer
     Dates: start: 20211112, end: 20220114
  4. PACLITAXEL [Suspect]
     Active Substance: PACLITAXEL
     Indication: Non-small cell lung cancer
     Dates: start: 20211112, end: 20220114

REACTIONS (5)
  - Immune-mediated hepatic disorder [Recovering/Resolving]
  - Immune-mediated lung disease [Recovered/Resolved]
  - Dyspnoea exertional [Unknown]
  - Cough [Unknown]
  - Hypersensitivity pneumonitis [Unknown]

NARRATIVE: CASE EVENT DATE: 20220114
